FAERS Safety Report 23526771 (Version 2)
Quarter: 2024Q2

REPORT INFORMATION
  Report Type: Report from Study
  Country: US (occurrence: US)
  Receive Date: 20240215
  Receipt Date: 20240523
  Transmission Date: 20240715
  Serious: Yes (Other)
  Sender: FDA-Public Use
  Company Number: US-ABBVIE-5639982

PATIENT
  Age: 50 Year
  Sex: Female

DRUGS (2)
  1. BOTOX [Suspect]
     Active Substance: ONABOTULINUMTOXINA
     Indication: Migraine
     Dosage: TIME INTERVAL: AS NECESSARY
     Route: 065
  2. BOTOX [Suspect]
     Active Substance: ONABOTULINUMTOXINA
     Indication: Migraine
     Dosage: TIME INTERVAL: AS NECESSARY
     Route: 065
     Dates: start: 20201017, end: 20201017

REACTIONS (7)
  - Medical device site discharge [Unknown]
  - Eyelid ptosis [Unknown]
  - Drug interaction [Unknown]
  - Intracranial pressure increased [Unknown]
  - Therapeutic response shortened [Unknown]
  - Migraine without aura [Unknown]
  - Headache [Unknown]

NARRATIVE: CASE EVENT DATE: 20230401
